FAERS Safety Report 8455136 (Version 2)
Quarter: 2013Q3

REPORT INFORMATION
  Report Type: Report from Study
  Country: US (occurrence: US)
  Receive Date: 20120313
  Receipt Date: 20130712
  Transmission Date: 20140515
  Serious: Yes (Hospitalization)
  Sender: FDA-Public Use
  Company Number: US-BRISTOL-MYERS SQUIBB COMPANY-15903156

PATIENT
  Age: 75 Year
  Sex: Female

DRUGS (5)
  1. GLYBURIDE [Suspect]
     Indication: TYPE 2 DIABETES MELLITUS
  2. LANTUS [Suspect]
     Indication: TYPE 2 DIABETES MELLITUS
  3. HUMALOG [Suspect]
     Indication: TYPE 2 DIABETES MELLITUS
  4. PLACEBO [Suspect]
     Indication: TYPE 2 DIABETES MELLITUS
     Dosage: INTER ON:23MAR11RESUME DATE 13JUL2011
     Dates: start: 20101124
  5. COUMADIN [Suspect]

REACTIONS (1)
  - Gastrointestinal telangiectasia [Recovered/Resolved]
